FAERS Safety Report 7878876-5 (Version None)
Quarter: 2011Q4

REPORT INFORMATION
  Report Type: 
  Country: None (occurrence: None)
  Receive Date: 20111024
  Receipt Date: 20110718
  Transmission Date: 20120403
  Serious: Yes (Other)
  Sender: FDA-Public Use
  Company Number: AMAG201100160

PATIENT
  Age: 41 Year
  Sex: Female
  Weight: 59.9 kg

DRUGS (1)
  1. FERAHEME [Suspect]
     Indication: CROHN'S DISEASE
     Dosage: 510 MG, SINGLE, INTRAVENOUS
     Route: 042
     Dates: start: 20110718, end: 20110718

REACTIONS (4)
  - BLOOD PRESSURE INCREASED [None]
  - DYSPNOEA [None]
  - FLUSHING [None]
  - PANIC REACTION [None]
